FAERS Safety Report 5355277-5 (Version None)
Quarter: 2007Q2

REPORT INFORMATION
  Report Type: 
  Country: None (occurrence: None)
  Receive Date: 20070525
  Receipt Date: 20060403
  Transmission Date: 20071010
  Serious: Yes (Life-Threatening)
  Sender: FDA-Public Use
  Company Number: 2006SP001648

PATIENT
  Age: 80 Year
  Sex: Male

DRUGS (5)
  1. XOPENEX [Suspect]
     Indication: DYSPNOEA
     Dosage: ;1X;INHALATION
  2. OXYGEN [Concomitant]
  3. ALBUTEROL W/IPRATROPIUM [Concomitant]
  4. FELODIPINE [Concomitant]
  5. ASPIRIN [Concomitant]

REACTIONS (1)
  - BRONCHOSPASM PARADOXICAL [None]
